FAERS Safety Report 10748381 (Version 1)
Quarter: 2015Q1

REPORT INFORMATION
  Report Type: Spontaneous
  Country: US (occurrence: None)
  Receive Date: 20150120
  Receipt Date: 20150120
  Transmission Date: 20150721
  Serious: No
  Sender: FDA-Public Use
  Company Number: AEGR000993

PATIENT
  Age: 75 Year
  Sex: Male
  Weight: 92.5 kg

DRUGS (3)
  1. ATORVASTATIN [Concomitant]
     Active Substance: ATORVASTATIN
  2. NIACIN FLUSH FREE (INOSITOL NICOTINATE) [Concomitant]
  3. JUXTAPID [Suspect]
     Active Substance: LOMITAPIDE MESYLATE
     Indication: TYPE IIA HYPERLIPIDAEMIA
     Route: 048
     Dates: start: 201411, end: 201411

REACTIONS (2)
  - Gastrointestinal disorder [None]
  - Malaise [None]

NARRATIVE: CASE EVENT DATE: 201411
